FAERS Safety Report 5219133-5 (Version None)
Quarter: 2007Q1

REPORT INFORMATION
  Report Type: 
  Country: None (occurrence: None)
  Receive Date: 20070124
  Receipt Date: 20070124
  Transmission Date: 20070707
  Serious: Yes (Other)
  Sender: FDA-Public Use
  Company Number: None

PATIENT
  Age: 82 Year
  Sex: Male
  Weight: 73.4827 kg

DRUGS (10)
  1. TIMOLOL MALEATE [Suspect]
     Indication: GLAUCOMA
     Dosage: ONE DROP EACH EYE, BID
     Dates: start: 20061013, end: 20061016
  2. LANTANOPROST [Concomitant]
  3. ARTIFICIAL TEARS [Concomitant]
  4. ASPIRIN [Concomitant]
  5. M.V.I. [Concomitant]
  6. BRIMONIDINE TARTRATE [Concomitant]
  7. RANITIDINE SENNOSIDES [Concomitant]
  8. SIMVASTATIN [Concomitant]
  9. VARDENAFIL [Concomitant]
  10. HYDROCHLOROTHIAZIDE [Concomitant]

REACTIONS (2)
  - EYELID OEDEMA [None]
  - EYELIDS PRURITUS [None]
